FAERS Safety Report 17686774 (Version 1)
Quarter: 2020Q2

REPORT INFORMATION
  Report Type: Spontaneous
  Country: NL (occurrence: NL)
  Receive Date: 20200421
  Receipt Date: 20200421
  Transmission Date: 20200714
  Serious: Yes (Other)
  Sender: FDA-Public Use
  Company Number: NL-AUROBINDO-AUR-APL-2020-019339

PATIENT
  Age: 49 Year
  Sex: Female

DRUGS (1)
  1. MELOXICAM TABLETS 15MG [Suspect]
     Active Substance: MELOXICAM
     Indication: SPONDYLITIS
     Dosage: 15 MILLILITER, ONCE A DAY
     Route: 048
     Dates: start: 20071119, end: 20090622

REACTIONS (3)
  - Diarrhoea [Recovered/Resolved]
  - Haematochezia [Recovered/Resolved]
  - Abdominal discomfort [Recovered/Resolved]

NARRATIVE: CASE EVENT DATE: 20090601
